FAERS Safety Report 19382252 (Version 2)
Quarter: 2022Q2

REPORT INFORMATION
  Report Type: Spontaneous
  Country: US (occurrence: US)
  Receive Date: 20210607
  Receipt Date: 20220523
  Transmission Date: 20220721
  Serious: Yes (Other)
  Sender: FDA-Public Use
  Company Number: US-BAYER-2021-148795

PATIENT
  Age: 22 Year
  Sex: Female
  Weight: 101 kg

DRUGS (2)
  1. MIRENA [Suspect]
     Active Substance: LEVONORGESTREL
     Indication: Contraception
     Dosage: 20?G/DAY
     Route: 015
     Dates: start: 20210419, end: 20211226
  2. FLAGYL [Concomitant]
     Active Substance: METRONIDAZOLE\METRONIDAZOLE HYDROCHLORIDE
     Dosage: 500 MG
     Dates: start: 20210412

REACTIONS (4)
  - Device breakage [None]
  - Device expulsion [Recovered/Resolved]
  - Pregnancy with contraceptive device [None]
  - Medical device monitoring error [None]

NARRATIVE: CASE EVENT DATE: 20210419
